FAERS Safety Report 6389364-X (Version None)
Quarter: 2009Q4

REPORT INFORMATION
  Report Type: 
  Country: None (occurrence: None)
  Receive Date: 20091005
  Receipt Date: 20091005
  Transmission Date: 20100525
  Serious: Yes (Life-Threatening, Hospitalization)
  Sender: FDA-Public Use
  Company Number: None

PATIENT
  Sex: Female
  Weight: 66.2 kg

DRUGS (9)
  1. ORENCIA [Suspect]
     Dosage: 750MG Q2WK AND 3 THEN Q40 IV
     Route: 042
     Dates: start: 20090225
  2. ORENCIA [Suspect]
     Dosage: 750MG Q2WK AND 3 THEN Q40 IV
     Route: 042
     Dates: start: 20090312
  3. ORENCIA [Suspect]
     Dosage: 750MG Q2WK AND 3 THEN Q40 IV
     Route: 042
     Dates: start: 20090326
  4. ORENCIA [Suspect]
     Dosage: 750MG Q2WK AND 3 THEN Q40 IV
     Route: 042
     Dates: start: 20090423
  5. ORENCIA [Suspect]
     Dosage: 750MG Q2WK AND 3 THEN Q40 IV
     Route: 042
     Dates: start: 20090520
  6. ORENCIA [Suspect]
     Dosage: 750MG Q2WK AND 3 THEN Q40 IV
     Route: 042
     Dates: start: 20090617
  7. ORENCIA [Suspect]
     Dosage: 750MG Q2WK AND 3 THEN Q40 IV
     Route: 042
     Dates: start: 20090715
  8. ORENCIA [Suspect]
     Dosage: 750MG Q2WK AND 3 THEN Q40 IV
     Route: 042
     Dates: start: 20090812
  9. ORENCIA [Suspect]
     Dosage: 750MG Q2WK AND 3 THEN Q40 IV
     Route: 042
     Dates: start: 20090909

REACTIONS (1)
  - PANCREATITIS NECROTISING [None]
